FAERS Safety Report 9203868 (Version 3)
Quarter: 2013Q3

REPORT INFORMATION
  Report Type: Spontaneous
  Country: US (occurrence: US)
  Receive Date: 20130402
  Receipt Date: 20130723
  Transmission Date: 20140515
  Serious: Yes (Other)
  Sender: FDA-Public Use
  Company Number: US-PFIZER INC-2013104084

PATIENT
  Age: 80 Year
  Sex: Female
  Weight: 64.85 kg

DRUGS (4)
  1. LIPITOR [Suspect]
     Indication: BLOOD CHOLESTEROL INCREASED
     Dosage: 20 MG, 1X/DAY
     Route: 048
  2. AMLODIPINE [Concomitant]
     Indication: HYPERTENSION
     Dosage: UNK
  3. SINGULAIR [Concomitant]
     Dosage: UNK
  4. ZETIA [Concomitant]
     Dosage: UNK

REACTIONS (11)
  - Neoplasm malignant [Unknown]
  - Cerebrovascular accident [Unknown]
  - Myocardial infarction [Unknown]
  - Hemiplegia [Unknown]
  - Deafness [Unknown]
  - Abasia [Unknown]
  - Cardiac disorder [Unknown]
  - Sensation of heaviness [Unknown]
  - Ankle fracture [Unknown]
  - Lower limb fracture [Unknown]
  - Body height decreased [Unknown]
